FAERS Safety Report 5122046-0 (Version None)
Quarter: 2006Q4

REPORT INFORMATION
  Report Type: 
  Country: None (occurrence: None)
  Receive Date: 20061004
  Receipt Date: 20061004
  Transmission Date: 20070319
  Serious: Yes (Hospitalization)
  Sender: FDA-Public Use
  Company Number: None

PATIENT
  Age: 84 Year
  Sex: Male
  Weight: 82.6 kg

DRUGS (4)
  1. CLOPIDOGREL [Suspect]
  2. IBUPROFEN [Concomitant]
  3. ASPIRIN [Concomitant]
  4. DEXAMETHASONE TAB [Concomitant]

REACTIONS (1)
  - HAEMORRHAGE [None]
